FAERS Safety Report 14607190 (Version 1)
Quarter: 2018Q1

REPORT INFORMATION
  Report Type: Spontaneous
  Country: US (occurrence: US)
  Receive Date: 20180306
  Receipt Date: 20180306
  Transmission Date: 20180509
  Serious: Yes (Hospitalization)
  Sender: FDA-Public Use
  Company Number: None

PATIENT
  Age: 91 Year
  Sex: Male
  Weight: 94 kg

DRUGS (8)
  1. XALATAN [Concomitant]
     Active Substance: LATANOPROST
  2. ASPIRIN. [Concomitant]
     Active Substance: ASPIRIN
  3. LASIX [Concomitant]
     Active Substance: FUROSEMIDE
  4. CHRONULAC [Concomitant]
     Active Substance: LACTULOSE
  5. MORPHINE ORAL SOLUTION [Suspect]
     Active Substance: MORPHINE SULFATE
     Indication: PAIN
     Dosage: 20MG Q2HRS PRN X 2 PO
     Route: 048
  6. COLCHICINE. [Concomitant]
     Active Substance: COLCHICINE
  7. PERICOLACE [Concomitant]
  8. ATIVAN [Concomitant]
     Active Substance: LORAZEPAM

REACTIONS (3)
  - Encephalopathy [None]
  - Sedation complication [None]
  - Acute kidney injury [None]

NARRATIVE: CASE EVENT DATE: 20171118
